FAERS Safety Report 18447111 (Version 1)
Quarter: 2020Q4

REPORT INFORMATION
  Report Type: Spontaneous
  Country: US (occurrence: US)
  Receive Date: 20201030
  Receipt Date: 20201030
  Transmission Date: 20210114
  Serious: No
  Sender: FDA-Public Use
  Company Number: US-NOVOPROD-754652

PATIENT
  Age: 82 Year
  Sex: Female

DRUGS (2)
  1. TRESIBA [Suspect]
     Active Substance: INSULIN DEGLUDEC
     Indication: DIABETES MELLITUS
     Dosage: 60 UNITS/DAY
     Route: 058
     Dates: start: 201910
  2. TRESIBA [Suspect]
     Active Substance: INSULIN DEGLUDEC
     Dosage: DOSE INCREASED
     Route: 058

REACTIONS (6)
  - Back pain [Unknown]
  - Stress [Unknown]
  - Blood glucose increased [Unknown]
  - Injection site pain [Unknown]
  - Blood glucose decreased [Unknown]
  - Arthralgia [Unknown]
